FAERS Safety Report 23067279 (Version 1)
Quarter: 2023Q4

REPORT INFORMATION
  Report Type: Spontaneous
  Country: GB (occurrence: GB)
  Receive Date: 20231016
  Receipt Date: 20231016
  Transmission Date: 20240110
  Serious: Yes (Other)
  Sender: FDA-Public Use
  Company Number: GB-BAXTER-2023BAX028927

PATIENT
  Age: 37 Year
  Sex: Female

DRUGS (15)
  1. DOXORUBICIN HYDROCHLORIDE [Suspect]
     Active Substance: DOXORUBICIN HYDROCHLORIDE
     Indication: Product used for unknown indication
     Dosage: UNK, 25% DOSE REDUCTION
     Route: 065
     Dates: start: 20230123
  2. DOXORUBICIN HYDROCHLORIDE [Suspect]
     Active Substance: DOXORUBICIN HYDROCHLORIDE
     Indication: Malignant fibrous histiocytoma
     Dosage: UNK, COMMENCED
     Route: 065
     Dates: start: 20200922
  3. DOXORUBICIN HYDROCHLORIDE [Suspect]
     Active Substance: DOXORUBICIN HYDROCHLORIDE
     Dosage: UNK, DOSE REDUCTION
     Route: 065
     Dates: start: 20230202
  4. DOXORUBICIN HYDROCHLORIDE [Suspect]
     Active Substance: DOXORUBICIN HYDROCHLORIDE
     Indication: Malignant fibrous histiocytoma
     Dosage: CYCLE 2
     Route: 065
     Dates: start: 20230224
  5. DOCETAXEL [Suspect]
     Active Substance: DOCETAXEL
     Indication: Product used for unknown indication
     Dosage: UNK
     Route: 065
     Dates: start: 20221203
  6. DOCETAXEL [Suspect]
     Active Substance: DOCETAXEL
     Dosage: UNK
     Route: 065
     Dates: start: 20221213
  7. DOCETAXEL [Suspect]
     Active Substance: DOCETAXEL
     Indication: Malignant fibrous histiocytoma
     Dosage: UNK,CYCLE 2 DAY 8
     Route: 065
     Dates: start: 20230113, end: 20230113
  8. GEMCITABINE [Suspect]
     Active Substance: GEMCITABINE
     Indication: Malignant fibrous histiocytoma
     Dosage: UNK
     Route: 065
     Dates: start: 20221203
  9. GEMCITABINE [Suspect]
     Active Substance: GEMCITABINE
     Indication: Product used for unknown indication
     Dosage: UNK,CYCLE 2 DAY 8
     Route: 065
     Dates: start: 20230113, end: 20230113
  10. IFOSFAMIDE [Suspect]
     Active Substance: IFOSFAMIDE
     Indication: Product used for unknown indication
     Dosage: UNK, DOSE-REDUCTION, LOW FLUID REGIMEN BECAUSE OF FLUID OVERLOAD IN CYCLE 1
     Route: 065
     Dates: start: 20210119
  11. IFOSFAMIDE [Suspect]
     Active Substance: IFOSFAMIDE
     Dosage: UNK,25% DOSE REDUCTION FROM 4 CYCLE
     Route: 065
     Dates: start: 20230420
  12. IFOSFAMIDE [Suspect]
     Active Substance: IFOSFAMIDE
     Dosage: UNK,COMMENCED
     Route: 065
     Dates: start: 20200922
  13. IFOSFAMIDE [Suspect]
     Active Substance: IFOSFAMIDE
     Indication: Malignant fibrous histiocytoma
     Dosage: UNK,CYCLE 2
     Route: 065
     Dates: start: 20230224
  14. IFOSFAMIDE [Suspect]
     Active Substance: IFOSFAMIDE
     Indication: Neutropenia
     Dosage: UNK,DOSE REDUCTION
     Route: 065
     Dates: start: 20230202
  15. IFOSFAMIDE [Suspect]
     Active Substance: IFOSFAMIDE
     Dosage: UNK,REDUCTION VOLUME, TWO DAYS
     Route: 065
     Dates: start: 20230123

REACTIONS (4)
  - Neoplasm progression [Unknown]
  - Neutropenic sepsis [Unknown]
  - Pulmonary oedema [Unknown]
  - Neutropenia [Unknown]

NARRATIVE: CASE EVENT DATE: 20221203
